FAERS Safety Report 7175430 (Version 2)
Quarter: 2014Q3

REPORT INFORMATION
  Report Type: Spontaneous
  Country: US (occurrence: None)
  Receive Date: 20091028
  Receipt Date: 20140915
  Transmission Date: 20150326
  Serious: Yes (Other)
  Sender: FDA-Public Use
  Company Number: 2009S1007786

PATIENT
  Age: 59 Year
  Sex: Female

DRUGS (4)
  1. PHOSPHO-SODA [Suspect]
     Active Substance: SODIUM PHOSPHATE, DIBASIC\SODIUM PHOSPHATE, MONOBASIC
     Indication: COLONOSCOPY
     Dosage: PO
     Route: 048
     Dates: start: 20080421, end: 20080421
  2. LOVASTATIN (LOVASTATIN) [Concomitant]
     Active Substance: LOVASTATIN
  3. LISINOPRIL (LISINOPRIL) [Concomitant]
     Active Substance: LISINOPRIL
  4. LEVOTHYROXINE (LEVOTHYROXINE) [Concomitant]
     Active Substance: LEVOTHYROXINE

REACTIONS (8)
  - Haemorrhoids [None]
  - Oesophageal spasm [None]
  - Nephrogenic anaemia [None]
  - Gastritis [None]
  - Barrett^s oesophagus [None]
  - Oesophageal stenosis [None]
  - Haemoglobin decreased [None]
  - Renal failure chronic [None]

NARRATIVE: CASE EVENT DATE: 20080603
